FAERS Safety Report 4352987-3 (Version None)
Quarter: 2004Q2

REPORT INFORMATION
  Report Type: 
  Country: None (occurrence: None)
  Receive Date: 20040430
  Receipt Date: 20040130
  Transmission Date: 20050107
  Serious: No
  Sender: FDA-Public Use
  Company Number: 204486

PATIENT
  Age: 34 Year
  Sex: Female
  Weight: 54.9 kg

DRUGS (7)
  1. XOLAIR [Suspect]
     Indication: ASTHMA
     Dosage: 375 MG,  Q2W, SUBCUTANEOUS
     Route: 058
     Dates: start: 20031015
  2. ADVAIR DISKUS [Concomitant]
  3. ALLEGRA [Concomitant]
  4. ALBUTEROL (ALBUTEROL, ALBUTEROL SULFATE) [Concomitant]
  5. XOPENEX [Concomitant]
  6. ALLERGY SHOTS (ALLERGENIC EXTRACTS) [Concomitant]
  7. SPORANOX (OTRACONAZOLE) [Concomitant]

REACTIONS (1)
  - ERYTHEMA [None]
